FAERS Safety Report 11370278 (Version 1)
Quarter: 2015Q3

REPORT INFORMATION
  Report Type: Spontaneous
  Country: IT (occurrence: IT)
  Receive Date: 20150812
  Receipt Date: 20150812
  Transmission Date: 20151125
  Serious: Yes (Other)
  Sender: FDA-Public Use
  Company Number: IT-JNJFOC-20150806891

PATIENT
  Sex: Male

DRUGS (1)
  1. REMICADE [Suspect]
     Active Substance: INFLIXIMAB
     Indication: ANKYLOSING SPONDYLITIS
     Dosage: 3-5 MG/KG/BODY WEIGHT AT 0,2,6 WEEKS AND EVERY 4 WEEKS THEREAFTER FOR A 5-YEAR PERIOD.
     Route: 042

REACTIONS (1)
  - Testicular seminoma (pure) [Unknown]
